FAERS Safety Report 7010817-5 (Version None)
Quarter: 2010Q3

REPORT INFORMATION
  Report Type: 
  Country: None (occurrence: None)
  Receive Date: 20100923
  Receipt Date: 20100923
  Transmission Date: 20110219
  Serious: Yes (Hospitalization)
  Sender: FDA-Public Use
  Company Number: None

PATIENT
  Age: 90 Year
  Sex: Female
  Weight: 79.3795 kg

DRUGS (2)
  1. NEXIUM [Suspect]
     Indication: DUODENAL ULCER
     Dates: start: 20060101
  2. DARVOCET-N 100 [Suspect]
     Indication: SPINAL COMPRESSION FRACTURE
     Dates: start: 20060101

REACTIONS (6)
  - ATRIAL FIBRILLATION [None]
  - CARDIAC DISORDER [None]
  - LABORATORY TEST INTERFERENCE [None]
  - MALABSORPTION [None]
  - MOBILITY DECREASED [None]
  - SPINAL COMPRESSION FRACTURE [None]
